FAERS Safety Report 5602273-6 (Version None)
Quarter: 2008Q1

REPORT INFORMATION
  Report Type: 
  Country: None (occurrence: None)
  Receive Date: 20080125
  Receipt Date: 20080118
  Transmission Date: 20080703
  Serious: Yes (Hospitalization)
  Sender: FDA-Public Use
  Company Number: SE-JNJFOC-20080105106

PATIENT
  Age: 33 Year
  Sex: Female

DRUGS (4)
  1. REMICADE [Suspect]
     Indication: RHEUMATOID ARTHRITIS
     Route: 042
  2. VOLTAREN [Concomitant]
  3. METHOTREXATE [Concomitant]
  4. CURADON [Concomitant]

REACTIONS (5)
  - ABSCESS JAW [None]
  - INFECTION IN AN IMMUNOCOMPROMISED HOST [None]
  - KNEE OPERATION [None]
  - ORAL PAIN [None]
  - UPPER RESPIRATORY TRACT INFECTION [None]
